FAERS Safety Report 8171997-1 (Version None)
Quarter: 2012Q1

REPORT INFORMATION
  Report Type: 
  Country: None (occurrence: None)
  Receive Date: 20120228
  Receipt Date: 20120224
  Transmission Date: 20120608
  Serious: Yes (Disabling, Other)
  Sender: FDA-Public Use
  Company Number: US-PFIZER INC-2012049946

PATIENT
  Sex: Male
  Weight: 88.435 kg

DRUGS (3)
  1. GEODON [Suspect]
     Indication: OBSESSIVE-COMPULSIVE DISORDER
  2. GEODON [Suspect]
     Indication: DEPRESSION
     Dosage: 100 MG, 1X/DAY
     Route: 048
  3. GEODON [Suspect]
     Indication: BIPOLAR DISORDER
     Dosage: 80 MG, 1X/DAY
     Route: 048
     Dates: start: 20100801

REACTIONS (6)
  - ANXIETY DISORDER [None]
  - RESTLESS LEGS SYNDROME [None]
  - PANIC ATTACK [None]
  - DEPRESSION [None]
  - OBSESSIVE-COMPULSIVE DISORDER [None]
  - BIPOLAR DISORDER [None]
